FAERS Safety Report 24585628 (Version 1)
Quarter: 2024Q4

REPORT INFORMATION
  Report Type: Report from Study
  Country: US (occurrence: US)
  Receive Date: 20241106
  Receipt Date: 20241106
  Transmission Date: 20250115
  Serious: Yes (Other)
  Sender: SUNOVION
  Company Number: US-SMPA-2024SPA004623AA

PATIENT

DRUGS (18)
  1. ORGOVYX [Suspect]
     Active Substance: RELUGOLIX
     Indication: Prostate cancer
     Dosage: 360 MG, SINGLE
     Route: 048
     Dates: start: 20241026, end: 20241026
  2. ORGOVYX [Suspect]
     Active Substance: RELUGOLIX
     Dosage: 120 MG, QD
     Route: 048
     Dates: start: 20241027
  3. ESOMEPRAZOLE [Concomitant]
     Active Substance: ESOMEPRAZOLE
     Route: 065
  4. MYRBETRIQ [Concomitant]
     Active Substance: MIRABEGRON
     Route: 065
  5. TRAMADOL [Concomitant]
     Active Substance: TRAMADOL
     Route: 065
  6. AMLODIPINE [Concomitant]
     Active Substance: AMLODIPINE BESYLATE
     Route: 065
  7. CETIRIZINE [Concomitant]
     Active Substance: CETIRIZINE HYDROCHLORIDE
     Route: 065
  8. COENZYME Q10 [Concomitant]
     Active Substance: DIETARY SUPPLEMENT\UBIDECARENONE
     Route: 065
  9. FLONASE [Concomitant]
     Active Substance: FLUTICASONE PROPIONATE
     Route: 065
  10. IPRATROPIUM BROMIDE [Concomitant]
     Active Substance: IPRATROPIUM BROMIDE
     Route: 065
  11. LISINOPRIL [Concomitant]
     Active Substance: LISINOPRIL
     Route: 065
  12. VITAMINS [Concomitant]
     Active Substance: VITAMINS
     Route: 065
  13. NIACIN [Concomitant]
     Active Substance: NIACIN
     Route: 065
  14. LOVAZA [Concomitant]
     Active Substance: OMEGA-3-ACID ETHYL ESTERS
     Route: 065
  15. SIMVASTATIN [Concomitant]
     Active Substance: SIMVASTATIN
     Route: 065
  16. METOPROLOL SUCCINATE [Concomitant]
     Active Substance: METOPROLOL SUCCINATE
     Dosage: EXTENDED RELEASE
     Route: 065
  17. CALCIUM\MAGNESIUM [Concomitant]
     Active Substance: CALCIUM\MAGNESIUM
     Route: 065
  18. ASPIRIN [Concomitant]
     Active Substance: ASPIRIN
     Route: 065

REACTIONS (2)
  - Arrhythmia [Unknown]
  - Hot flush [Unknown]

NARRATIVE: CASE EVENT DATE: 20241028
